FAERS Safety Report 4605252-0 (Version None)
Quarter: 2005Q1

REPORT INFORMATION
  Report Type: 
  Country: None (occurrence: None)
  Receive Date: 20050310
  Receipt Date: 20040302
  Transmission Date: 20050727
  Serious: No
  Sender: FDA-Public Use
  Company Number: US-BRISTOL-MYERS SQUIBB COMPANY-12525366

PATIENT
  Age: 43 Year
  Sex: Female

DRUGS (2)
  1. VAGISTAT-1 [Suspect]
     Indication: VAGINAL MYCOSIS
     Route: 067
     Dates: start: 20040301, end: 20040301
  2. SYNTHROID [Concomitant]

REACTIONS (2)
  - BLOOD URINE PRESENT [None]
  - DYSURIA [None]
